FAERS Safety Report 25948817 (Version 2)
Quarter: 2025Q4

REPORT INFORMATION
  Report Type: Spontaneous
  Country: CA (occurrence: CA)
  Receive Date: 20251022
  Receipt Date: 20251114
  Transmission Date: 20260117
  Serious: Yes (Other)
  Sender: TEVA
  Company Number: CA-TEVA-VS-3382842

PATIENT
  Age: 41 Year
  Sex: Female

DRUGS (113)
  1. ALBUTEROL SULFATE [Suspect]
     Active Substance: ALBUTEROL SULFATE
     Indication: Product used for unknown indication
     Route: 065
  2. TRIMETHOPRIM [Suspect]
     Active Substance: TRIMETHOPRIM
     Indication: Product used for unknown indication
     Route: 065
  3. NAPROXEN [Concomitant]
     Active Substance: NAPROXEN
     Indication: Product used for unknown indication
     Dosage: DOSE FORM: NOT SPECIFIED
     Route: 065
  4. ESOMEPRAZOLE [Suspect]
     Active Substance: ESOMEPRAZOLE
     Indication: Product used for unknown indication
     Dosage: DOSE FORM: NOT SPECIFIED
     Route: 065
  5. INDOMETHACIN [Suspect]
     Active Substance: INDOMETHACIN
     Indication: Migraine
     Route: 054
  6. INDOMETHACIN [Suspect]
     Active Substance: INDOMETHACIN
     Indication: Migraine
     Route: 054
  7. INDOMETHACIN [Suspect]
     Active Substance: INDOMETHACIN
     Indication: Migraine
     Route: 054
  8. INDOMETHACIN [Suspect]
     Active Substance: INDOMETHACIN
     Indication: Migraine
     Route: 054
  9. INDOMETHACIN [Suspect]
     Active Substance: INDOMETHACIN
     Indication: Migraine
     Route: 054
  10. INDOMETHACIN [Suspect]
     Active Substance: INDOMETHACIN
     Indication: Migraine
     Route: 054
  11. INDOMETHACIN [Suspect]
     Active Substance: INDOMETHACIN
     Indication: Migraine
     Route: 054
  12. INDOMETHACIN [Suspect]
     Active Substance: INDOMETHACIN
     Indication: Migraine
     Route: 054
  13. INDOMETHACIN [Suspect]
     Active Substance: INDOMETHACIN
     Indication: Migraine
     Route: 054
  14. INDOMETHACIN [Suspect]
     Active Substance: INDOMETHACIN
     Indication: Migraine
     Route: 054
  15. INDOMETHACIN [Suspect]
     Active Substance: INDOMETHACIN
     Indication: Migraine
     Route: 054
  16. INDOMETHACIN [Suspect]
     Active Substance: INDOMETHACIN
     Indication: Migraine
     Route: 054
  17. INDOMETHACIN [Suspect]
     Active Substance: INDOMETHACIN
     Indication: Migraine
     Route: 054
  18. INDOMETHACIN [Suspect]
     Active Substance: INDOMETHACIN
     Indication: Migraine
     Route: 054
  19. INDOMETHACIN [Suspect]
     Active Substance: INDOMETHACIN
     Indication: Migraine
     Route: 054
  20. INDOMETHACIN [Suspect]
     Active Substance: INDOMETHACIN
     Indication: Migraine
     Route: 054
  21. INDOMETHACIN [Suspect]
     Active Substance: INDOMETHACIN
     Indication: Migraine
     Route: 054
  22. INDOMETHACIN [Suspect]
     Active Substance: INDOMETHACIN
     Indication: Migraine
     Route: 054
  23. OSELTAMIVIR [Concomitant]
     Active Substance: OSELTAMIVIR
     Indication: Product used for unknown indication
     Route: 065
  24. MORPHINE SULFATE [Concomitant]
     Active Substance: MORPHINE SULFATE
     Indication: Product used for unknown indication
     Route: 065
  25. PANTOPRAZOLE SODIUM ANHYDROUS [Concomitant]
     Active Substance: PANTOPRAZOLE SODIUM ANHYDROUS
     Indication: Product used for unknown indication
     Dosage: DOSE FORM: NOT SPECIFIED
     Route: 065
  26. DANAZOL [Concomitant]
     Active Substance: DANAZOL
     Indication: Product used for unknown indication
     Route: 065
  27. DULOXETINE HYDROCHLORIDE [Suspect]
     Active Substance: DULOXETINE HYDROCHLORIDE
     Indication: Migraine
     Dosage: DOSE FORM: CAPSULE, DELAYED RELEASE
     Route: 065
  28. RIZATRIPTAN BENZOATE [Suspect]
     Active Substance: RIZATRIPTAN BENZOATE
     Indication: Product used for unknown indication
     Route: 065
  29. AMOXICILLIN TRIHYDRATE [Suspect]
     Active Substance: AMOXICILLIN
     Indication: Product used for unknown indication
     Route: 065
  30. AMOXICILLIN TRIHYDRATE [Suspect]
     Active Substance: AMOXICILLIN
     Indication: Product used for unknown indication
     Route: 065
  31. METRONIDAZOLE [Concomitant]
     Active Substance: METRONIDAZOLE
     Indication: Product used for unknown indication
     Route: 065
  32. CIPROFLOXACIN HYDROCHLORIDE [Suspect]
     Active Substance: CIPROFLOXACIN HYDROCHLORIDE
     Indication: Migraine
     Route: 065
  33. CIPROFLOXACIN HYDROCHLORIDE [Suspect]
     Active Substance: CIPROFLOXACIN HYDROCHLORIDE
     Indication: Migraine
     Route: 048
  34. CYMBALTA [Concomitant]
     Active Substance: DULOXETINE HYDROCHLORIDE
     Indication: Product used for unknown indication
     Dosage: DOSE FORM: NOT SPECIFIED
     Route: 065
  35. CLARITHROMYCIN [Suspect]
     Active Substance: CLARITHROMYCIN
     Indication: Product used for unknown indication
     Dosage: DOSE FORM: NOT SPECIFIED
     Route: 065
  36. PREDNISONE [Suspect]
     Active Substance: PREDNISONE
     Indication: Product used for unknown indication
     Route: 065
  37. TRAMADOL HYDROCHLORIDE [Suspect]
     Active Substance: TRAMADOL HYDROCHLORIDE
     Indication: Product used for unknown indication
     Dosage: DOSE FORM: NOT SPECIFIED
     Route: 065
  38. LISINOPRIL [Suspect]
     Active Substance: LISINOPRIL
     Indication: Migraine
     Route: 048
  39. TOPIRAMATE [Suspect]
     Active Substance: TOPIRAMATE
     Indication: Migraine
     Dosage: DOSE FORM: NOT SPECIFIED
     Route: 065
  40. POLYETHYLENE GLYCOLS [Concomitant]
     Active Substance: POLYETHYLENE GLYCOLS
     Indication: Product used for unknown indication
     Route: 065
  41. SUMATRIPTAN SUCCINATE [Suspect]
     Active Substance: SUMATRIPTAN SUCCINATE
     Indication: Product used for unknown indication
     Route: 065
  42. FLUOXETINE HYDROCHLORIDE [Concomitant]
     Active Substance: FLUOXETINE HYDROCHLORIDE
     Indication: Product used for unknown indication
     Route: 065
  43. SULFATRIM [Concomitant]
     Active Substance: SULFAMETHOXAZOLE\TRIMETHOPRIM
     Indication: Product used for unknown indication
     Dosage: DOSE FORM: NOT SPECIFIED
     Route: 065
  44. ACETAMINOPHEN [Suspect]
     Active Substance: ACETAMINOPHEN
     Indication: Product used for unknown indication
     Dosage: DOSE FORM: NOT SPECIFIED
     Route: 065
  45. PROPRANOLOL [Suspect]
     Active Substance: PROPRANOLOL HYDROCHLORIDE
     Indication: Migraine
     Route: 065
  46. ESCITALOPRAM OXALATE [Suspect]
     Active Substance: ESCITALOPRAM OXALATE
     Indication: Migraine
     Route: 065
  47. ZOPICLONE [Suspect]
     Active Substance: ZOPICLONE
     Indication: Product used for unknown indication
     Route: 065
  48. ZOPICLONE [Suspect]
     Active Substance: ZOPICLONE
     Indication: Product used for unknown indication
     Route: 065
  49. ZOPICLONE [Suspect]
     Active Substance: ZOPICLONE
     Indication: Product used for unknown indication
     Route: 065
  50. ZOPICLONE [Suspect]
     Active Substance: ZOPICLONE
     Indication: Product used for unknown indication
     Route: 065
  51. ZOPICLONE [Suspect]
     Active Substance: ZOPICLONE
     Indication: Product used for unknown indication
     Route: 065
  52. ZOPICLONE [Suspect]
     Active Substance: ZOPICLONE
     Indication: Product used for unknown indication
     Route: 065
  53. ZOPICLONE [Suspect]
     Active Substance: ZOPICLONE
     Indication: Product used for unknown indication
     Route: 065
  54. ZOPICLONE [Suspect]
     Active Substance: ZOPICLONE
     Indication: Product used for unknown indication
     Route: 065
  55. ZOPICLONE [Suspect]
     Active Substance: ZOPICLONE
     Indication: Product used for unknown indication
     Route: 065
  56. ZOPICLONE [Suspect]
     Active Substance: ZOPICLONE
     Indication: Product used for unknown indication
     Route: 065
  57. ZOPICLONE [Suspect]
     Active Substance: ZOPICLONE
     Indication: Product used for unknown indication
     Route: 065
  58. ZOPICLONE [Suspect]
     Active Substance: ZOPICLONE
     Indication: Product used for unknown indication
     Route: 065
  59. ZOPICLONE [Suspect]
     Active Substance: ZOPICLONE
     Indication: Product used for unknown indication
     Route: 065
  60. ZOPICLONE [Suspect]
     Active Substance: ZOPICLONE
     Indication: Product used for unknown indication
     Route: 065
  61. ZOPICLONE [Suspect]
     Active Substance: ZOPICLONE
     Indication: Product used for unknown indication
     Route: 065
  62. ZOPICLONE [Suspect]
     Active Substance: ZOPICLONE
     Indication: Product used for unknown indication
     Route: 065
  63. ZOPICLONE [Suspect]
     Active Substance: ZOPICLONE
     Indication: Product used for unknown indication
     Route: 065
  64. VENLAFAXINE HYDROCHLORIDE [Suspect]
     Active Substance: VENLAFAXINE HYDROCHLORIDE
     Indication: Product used for unknown indication
     Route: 065
  65. HYDROMORPHONE [Suspect]
     Active Substance: HYDROMORPHONE
     Indication: Product used for unknown indication
     Dosage: DOSE FORM: NOT SPECIFIED
     Route: 065
  66. HYDROMORPHONE [Suspect]
     Active Substance: HYDROMORPHONE
     Indication: Product used for unknown indication
     Route: 065
  67. HYDROMORPHONE [Suspect]
     Active Substance: HYDROMORPHONE
     Indication: Product used for unknown indication
     Route: 065
  68. HYDROMORPHONE [Suspect]
     Active Substance: HYDROMORPHONE
     Indication: Product used for unknown indication
     Route: 065
  69. HYDROMORPHONE [Suspect]
     Active Substance: HYDROMORPHONE
     Indication: Product used for unknown indication
     Route: 065
  70. HYDROMORPHONE [Suspect]
     Active Substance: HYDROMORPHONE
     Indication: Product used for unknown indication
     Route: 065
  71. HYDROMORPHONE [Suspect]
     Active Substance: HYDROMORPHONE
     Indication: Product used for unknown indication
     Route: 065
  72. HYDROMORPHONE [Suspect]
     Active Substance: HYDROMORPHONE
     Indication: Product used for unknown indication
     Route: 065
  73. HYDROMORPHONE [Suspect]
     Active Substance: HYDROMORPHONE
     Indication: Product used for unknown indication
     Route: 065
  74. HYDROMORPHONE [Suspect]
     Active Substance: HYDROMORPHONE
     Indication: Product used for unknown indication
     Route: 065
  75. CEPHALEXIN [Concomitant]
     Active Substance: CEPHALEXIN
     Indication: Product used for unknown indication
     Dosage: DOSE FORM: NOT SPECIFIED
     Route: 065
  76. MOMETASONE FUROATE [Suspect]
     Active Substance: MOMETASONE FUROATE
     Indication: Migraine
     Dosage: DOSE FORM: NOT SPECIFIED
     Route: 065
  77. MOMETASONE FUROATE [Suspect]
     Active Substance: MOMETASONE FUROATE
     Indication: Migraine
     Route: 065
  78. CODEINE [Suspect]
     Active Substance: CODEINE
     Indication: Migraine
     Route: 065
  79. ZOLMITRIPTAN [Suspect]
     Active Substance: ZOLMITRIPTAN
     Indication: Product used for unknown indication
     Route: 065
  80. AZITHROMYCIN [Suspect]
     Active Substance: AZITHROMYCIN
     Indication: Migraine
     Route: 065
  81. CEFUROXIME SODIUM [Concomitant]
     Active Substance: CEFUROXIME SODIUM
     Indication: Product used for unknown indication
     Route: 065
  82. FLUCONAZOLE [Suspect]
     Active Substance: FLUCONAZOLE
     Indication: Migraine
     Dosage: DOSE FORM: NOT SPECIFIED
     Route: 065
  83. FROVATRIPTAN SUCCINATE [Concomitant]
     Active Substance: FROVATRIPTAN SUCCINATE
     Indication: Product used for unknown indication
     Route: 065
  84. LANSOPRAZOLE [Suspect]
     Active Substance: LANSOPRAZOLE
     Indication: Product used for unknown indication
     Route: 065
  85. FERROUS FUMARATE [Concomitant]
     Active Substance: FERROUS FUMARATE
     Indication: Product used for unknown indication
     Dosage: DOSE FORM: NOT SPECIFIED
     Route: 065
  86. MACROBID [Concomitant]
     Active Substance: NITROFURANTOIN\NITROFURANTOIN MONOHYDRATE
     Indication: Product used for unknown indication
     Route: 065
  87. METOCLOPRAMIDE [Concomitant]
     Active Substance: METOCLOPRAMIDE
     Indication: Product used for unknown indication
     Dosage: DOSE FORM: NOT SPECIFIED
     Route: 065
  88. 24HR NASAL ALLERGY RELIEF [Concomitant]
     Indication: Product used for unknown indication
     Route: 065
  89. SCOPOLAMINE HYDROBROMIDE [Suspect]
     Active Substance: SCOPOLAMINE HYDROBROMIDE
     Indication: Migraine
     Route: 065
  90. BOTULINUM TOXIN TYPE A [Suspect]
     Active Substance: BOTULINUM TOXIN TYPE A
     Indication: Product used for unknown indication
     Route: 065
  91. BOTULINUM TOXIN TYPE A [Suspect]
     Active Substance: BOTULINUM TOXIN TYPE A
     Indication: Product used for unknown indication
     Route: 065
  92. BOTULINUM TOXIN TYPE A [Suspect]
     Active Substance: BOTULINUM TOXIN TYPE A
     Indication: Product used for unknown indication
     Route: 065
  93. BOTULINUM TOXIN TYPE A [Suspect]
     Active Substance: BOTULINUM TOXIN TYPE A
     Indication: Product used for unknown indication
     Route: 065
  94. BOTULINUM TOXIN TYPE A [Suspect]
     Active Substance: BOTULINUM TOXIN TYPE A
     Indication: Product used for unknown indication
     Route: 065
  95. BOTULINUM TOXIN TYPE A [Suspect]
     Active Substance: BOTULINUM TOXIN TYPE A
     Indication: Product used for unknown indication
     Dosage: DOSE FORM: POWDER FOR SOLUTION
     Route: 065
  96. RABEPRAZOLE [Suspect]
     Active Substance: RABEPRAZOLE
     Indication: Migraine
     Route: 065
  97. RABEPRAZOLE [Suspect]
     Active Substance: RABEPRAZOLE
     Indication: Migraine
     Route: 065
  98. RABEPRAZOLE [Suspect]
     Active Substance: RABEPRAZOLE
     Indication: Migraine
     Route: 065
  99. RABEPRAZOLE [Suspect]
     Active Substance: RABEPRAZOLE
     Indication: Migraine
     Route: 065
  100. RABEPRAZOLE [Suspect]
     Active Substance: RABEPRAZOLE
     Indication: Migraine
     Route: 065
  101. RABEPRAZOLE [Suspect]
     Active Substance: RABEPRAZOLE
     Indication: Migraine
     Route: 065
  102. RABEPRAZOLE [Suspect]
     Active Substance: RABEPRAZOLE
     Indication: Migraine
     Route: 065
  103. RABEPRAZOLE [Suspect]
     Active Substance: RABEPRAZOLE
     Indication: Migraine
     Route: 065
  104. RABEPRAZOLE [Suspect]
     Active Substance: RABEPRAZOLE
     Indication: Migraine
     Route: 065
  105. RABEPRAZOLE [Suspect]
     Active Substance: RABEPRAZOLE
     Indication: Migraine
     Route: 065
  106. RABEPRAZOLE [Suspect]
     Active Substance: RABEPRAZOLE
     Indication: Migraine
     Route: 065
  107. RABEPRAZOLE [Suspect]
     Active Substance: RABEPRAZOLE
     Indication: Migraine
     Route: 065
  108. RABEPRAZOLE [Suspect]
     Active Substance: RABEPRAZOLE
     Indication: Migraine
     Route: 065
  109. RABEPRAZOLE [Suspect]
     Active Substance: RABEPRAZOLE
     Indication: Migraine
     Route: 065
  110. RABEPRAZOLE [Suspect]
     Active Substance: RABEPRAZOLE
     Indication: Migraine
     Route: 065
  111. SERTRALINE HYDROCHLORIDE [Suspect]
     Active Substance: SERTRALINE HYDROCHLORIDE
     Indication: Migraine
     Route: 065
  112. DEXAMETHASONE [Suspect]
     Active Substance: DEXAMETHASONE
     Indication: Migraine
     Dosage: DOSE FORM: NOT SPECIFIED
     Route: 065
  113. METOCLOPRAMIDE [Suspect]
     Active Substance: METOCLOPRAMIDE
     Indication: Migraine
     Route: 065

REACTIONS (10)
  - Angioedema [Unknown]
  - Drug ineffective [Unknown]
  - Dysphonia [Unknown]
  - Swollen tongue [Unknown]
  - Swelling face [Unknown]
  - Drug ineffective for unapproved indication [Unknown]
  - Hypersensitivity [Unknown]
  - Headache [Unknown]
  - Off label use [Unknown]
  - Drug intolerance [Unknown]
